FAERS Safety Report 4427532-4 (Version None)
Quarter: 2004Q3

REPORT INFORMATION
  Report Type: 
  Country: None (occurrence: None)
  Receive Date: 20040812
  Receipt Date: 20040729
  Transmission Date: 20050211
  Serious: Yes (Hospitalization)
  Sender: FDA-Public Use
  Company Number: 2004-BP-06316BP

PATIENT
  Age: 73 Year
  Sex: Male

DRUGS (6)
  1. FLOMAX [Suspect]
     Indication: BENIGN PROSTATIC HYPERPLASIA
     Dosage: 0.4 MG (0.4 MG, IN QD), PO  SEE TEXT (0.4 MG , 1 QOD), PO  : SEE TEXT (0.4 MG, 1 QOD), PO
     Route: 048
     Dates: start: 20030801, end: 20030801
  2. FLOMAX [Suspect]
     Indication: BENIGN PROSTATIC HYPERPLASIA
     Dosage: 0.4 MG (0.4 MG, IN QD), PO  SEE TEXT (0.4 MG , 1 QOD), PO  : SEE TEXT (0.4 MG, 1 QOD), PO
     Route: 048
     Dates: start: 20040301, end: 20040701
  3. FLOMAX [Suspect]
     Indication: BENIGN PROSTATIC HYPERPLASIA
     Dosage: 0.4 MG (0.4 MG, IN QD), PO  SEE TEXT (0.4 MG , 1 QOD), PO  : SEE TEXT (0.4 MG, 1 QOD), PO
     Route: 048
     Dates: start: 20040701, end: 20040722
  4. METOPROLOL [Concomitant]
  5. AMIODARONE [Concomitant]
  6. ACETYLSALICYLIC ACID SRT [Concomitant]

REACTIONS (4)
  - CONDITION AGGRAVATED [None]
  - FATIGUE [None]
  - VENTRICULAR FIBRILLATION [None]
  - VENTRICULAR TACHYCARDIA [None]
